FAERS Safety Report 15883338 (Version 1)
Quarter: 2019Q1

REPORT INFORMATION
  Report Type: Spontaneous
  Country: DE (occurrence: DE)
  Receive Date: 20190129
  Receipt Date: 20190129
  Transmission Date: 20190417
  Serious: Yes (Hospitalization)
  Sender: FDA-Public Use
  Company Number: DE-ACCORD-103757

PATIENT
  Age: 62 Year
  Sex: Female

DRUGS (11)
  1. AMLODIPINE [Concomitant]
     Active Substance: AMLODIPINE BESYLATE
     Dosage: 5 MG, 1-0-1-0, TABLETS
     Route: 048
  2. RIFAMPICIN [Concomitant]
     Active Substance: RIFAMPIN
     Dosage: 600 MG, 1-0-1-0, TABLETS
     Route: 048
  3. PRIVIGEN [Concomitant]
     Active Substance: HUMAN IMMUNOGLOBULIN G
     Dosage: 20 G, EVERY 4 WEEKS, SOLUTION FOR INJECTION / INFUSION
     Route: 042
  4. PREDNISOLONE. [Concomitant]
     Active Substance: PREDNISOLONE
     Dosage: 4 MG, 1-0-0-0, TABLETS
     Route: 048
  5. CLOPIDOGREL [Suspect]
     Active Substance: CLOPIDOGREL BISULFATE
     Indication: PRODUCT USED FOR UNKNOWN INDICATION
     Dosage: 75 MG, 1-0-0-0, TABLETS
     Route: 048
  6. ESCITALOPRAM [Concomitant]
     Active Substance: ESCITALOPRAM OXALATE
     Dosage: 10 MG, 1-0-0-0, TABLETS
     Route: 048
  7. LINEZOLID. [Concomitant]
     Active Substance: LINEZOLID
     Dosage: 600 MG, 1-0-1-0, TABLETS
     Route: 048
  8. ZOPICLONE [Concomitant]
     Active Substance: ZOPICLONE
     Dosage: 7.5 MG, NEED, TABLETS
     Route: 048
  9. PHENPROCOUMON [Suspect]
     Active Substance: PHENPROCOUMON
     Indication: PRODUCT USED FOR UNKNOWN INDICATION
     Dosage: 3 MG, NACH INR, TABLETS
     Route: 048
  10. PANTOPRAZOLE [Concomitant]
     Active Substance: PANTOPRAZOLE
     Dosage: 40 MG, 0-0-1-0, TABLETS
     Route: 048
  11. ATORVASTATIN [Concomitant]
     Active Substance: ATORVASTATIN
     Dosage: 40 MG, 0-0-1-0, TABLETS
     Route: 048

REACTIONS (6)
  - General physical health deterioration [Unknown]
  - Haematochezia [Unknown]
  - Gastrointestinal haemorrhage [Unknown]
  - Nausea [Unknown]
  - Vomiting [Unknown]
  - Overdose [Unknown]
